FAERS Safety Report 10005837 (Version 2)
Quarter: 2014Q1

REPORT INFORMATION
  Report Type: Report from Study
  Country: SE (occurrence: SE)
  Receive Date: 20140313
  Receipt Date: 20140313
  Transmission Date: 20141002
  Serious: Yes (Hospitalization, Other)
  Sender: FDA-Public Use
  Company Number: SE-UCBSA-114215

PATIENT
  Age: 58 Year
  Sex: Male

DRUGS (2)
  1. CIMZIA [Suspect]
     Indication: RHEUMATOID ARTHRITIS
     Dosage: 200,200, MG
     Dates: start: 20120919, end: 20140113
  2. SALAZOPYRIN [Concomitant]
     Dosage: 2000,2000 MG
     Dates: start: 20060823, end: 20131119

REACTIONS (1)
  - Pleurisy [Recovering/Resolving]
